FAERS Safety Report 22341721 (Version 1)
Quarter: 2023Q2

REPORT INFORMATION
  Report Type: Spontaneous
  Country: US (occurrence: US)
  Receive Date: 20230518
  Receipt Date: 20230518
  Transmission Date: 20230721
  Serious: No
  Sender: FDA-Public Use
  Company Number: US-GALDERMA-US2023004701

PATIENT

DRUGS (5)
  1. PROACTIV MD ADAPALENE ACNE TREATMENT [Suspect]
     Active Substance: ADAPALENE
     Indication: Acne
     Dosage: 1 DOSAGE FORM, QD, PEA SIZED AMOUNT, AT NIGHTS
     Route: 061
     Dates: start: 202301, end: 202303
  2. Proactiv MD Ultra Hydrating Moisturizer [Concomitant]
     Indication: Acne
     Dosage: 1 DOSAGE FORM, DIME SIZED AMOUNT, 2 OR MORE TIMES A DAY
     Route: 061
     Dates: start: 202301, end: 202303
  3. Proactiv MD Ultra Gentle Cleanser [Concomitant]
     Indication: Acne
     Dosage: 1 DOSAGE FORM, DIME SIZED AMOUNT, 2 OR MORE TIMES A DAY
     Route: 061
     Dates: start: 202301, end: 202303
  4. Proactiv Post Acne Dark Mark Relief [Concomitant]
     Indication: Acne
     Dosage: 1 DOSAGE FORM, DIME SIZED AMOUNT, 2 OR MORE TIMES A DAY
     Route: 061
     Dates: start: 202301, end: 202303
  5. Proactiv Post Acne Scar Gel [Concomitant]
     Indication: Acne
     Dosage: 1 DOSAGE FORM, DIME SIZED AMOUNT, 2 OR MORE TIMES A DAY
     Route: 061
     Dates: start: 202301, end: 202303

REACTIONS (2)
  - Acne [Recovering/Resolving]
  - Drug ineffective [Unknown]

NARRATIVE: CASE EVENT DATE: 20230201
